FAERS Safety Report 9060888 (Version 1)
Quarter: 2013Q1

REPORT INFORMATION
  Report Type: Report from Study
  Country: BR (occurrence: BR)
  Receive Date: 20130204
  Receipt Date: 20130204
  Transmission Date: 20140127
  Serious: Yes (Hospitalization)
  Sender: FDA-Public Use
  Company Number: BR-ASTRAZENECA-2013SE04407

PATIENT
  Age: 27504 Day
  Sex: Female

DRUGS (9)
  1. AZD6140 [Suspect]
     Indication: CORONARY ARTERY DISEASE
     Route: 048
     Dates: start: 20120316
  2. ASPIRIN [Suspect]
     Route: 048
  3. STUDY PROCEDURE [Suspect]
     Indication: CORONARY ARTERY DISEASE
     Route: 065
  4. CARVEDILOL [Concomitant]
     Indication: CORONARY ARTERY DISEASE
     Route: 048
  5. HALOPERIDOL [Concomitant]
     Indication: DEPRESSION
     Route: 048
  6. SIMVASTATIN [Concomitant]
     Indication: CORONARY ARTERY DISEASE
     Route: 048
  7. RANITIDINE [Concomitant]
     Indication: GASTRITIS PROPHYLAXIS
     Route: 048
  8. SUSTRATE [Concomitant]
     Indication: CORONARY ARTERY DISEASE
     Route: 048
  9. FLUOXETIN [Concomitant]
     Indication: DEPRESSION
     Route: 048

REACTIONS (1)
  - Gastric ulcer [Not Recovered/Not Resolved]
